FAERS Safety Report 9934690 (Version 1)
Quarter: 2014Q1

REPORT INFORMATION
  Report Type: Spontaneous
  Country: US (occurrence: US)
  Receive Date: 20140228
  Receipt Date: 20140228
  Transmission Date: 20141002
  Serious: No
  Sender: FDA-Public Use
  Company Number: US-ASTRAZENECA-2013SE76944

PATIENT
  Age: 67 Year
  Sex: Female
  Weight: 47.6 kg

DRUGS (9)
  1. METOPROLOL SUCCINATE [Suspect]
     Indication: HEART RATE DECREASED
     Route: 048
     Dates: start: 20131010, end: 20131011
  2. METOPROLOL SUCCINATE [Suspect]
     Indication: HEART RATE DECREASED
     Route: 048
     Dates: start: 20131012, end: 20131013
  3. METOPROLOL SUCCINATE [Suspect]
     Indication: HEART RATE DECREASED
     Route: 048
     Dates: start: 20131016
  4. FLONASE [Concomitant]
     Indication: HYPERSENSITIVITY
     Dosage: NOT REPORTED ON AND OFF
  5. PATANASE [Concomitant]
     Indication: HYPERSENSITIVITY
     Dosage: NOT REPORTED ON AND OFF
  6. ECOTRIN [Concomitant]
     Indication: CARDIAC DISORDER
     Dosage: 1 TABLET DAILY
  7. ALBUTEROL PUMP [Concomitant]
     Indication: HYPERSENSITIVITY
     Dosage: NOT REPORTED
  8. PEPCID [Concomitant]
     Indication: FLATULENCE
  9. GASEX [Concomitant]
     Indication: FLATULENCE
     Dosage: DAILY

REACTIONS (6)
  - Dizziness [Recovering/Resolving]
  - Vertigo [Recovering/Resolving]
  - Chest discomfort [Recovering/Resolving]
  - Flatulence [Unknown]
  - Panic attack [Recovered/Resolved]
  - Off label use [Unknown]
